FAERS Safety Report 10570924 (Version 1)
Quarter: 2014Q4

REPORT INFORMATION
  Report Type: Spontaneous
  Country: BR (occurrence: BR)
  Receive Date: 20141107
  Receipt Date: 20141107
  Transmission Date: 20150529
  Serious: Yes (Other)
  Sender: FDA-Public Use
  Company Number: BR-ELI_LILLY_AND_COMPANY-BR201410011177

PATIENT
  Sex: Male
  Weight: 102 kg

DRUGS (15)
  1. HUMULIN N [Suspect]
     Active Substance: INSULIN HUMAN
     Dosage: 45 IU, EACH MORNING
     Route: 058
  2. HUMULIN N [Suspect]
     Active Substance: INSULIN HUMAN
     Dosage: 16 IU, EACH EVENING
     Route: 058
  3. NOVOLIN N [Suspect]
     Active Substance: INSULIN HUMAN
     Dosage: 16 IU, EACH EVENING
     Route: 058
     Dates: start: 201409
  4. LINAGLIPTIN [Concomitant]
     Active Substance: LINAGLIPTIN
     Indication: DIABETES MELLITUS
     Dosage: UNK, UNKNOWN
     Route: 065
     Dates: start: 201409
  5. HUMULIN R [Suspect]
     Active Substance: INSULIN HUMAN
     Indication: DIABETES MELLITUS
     Dosage: UNK UNK, BID
     Route: 058
  6. CORUS [Concomitant]
     Active Substance: LOSARTAN POTASSIUM
     Indication: BLOOD PRESSURE
     Dosage: 2 DF, UNKNOWN
     Route: 065
  7. HUMULIN N [Suspect]
     Active Substance: INSULIN HUMAN
     Indication: DIABETES MELLITUS
     Dosage: UNK, BID
     Route: 058
  8. HUMULIN N [Suspect]
     Active Substance: INSULIN HUMAN
     Dosage: 16 IU, EACH EVENING
     Route: 058
  9. PANTOPRAZOLE [Concomitant]
     Active Substance: PANTOPRAZOLE SODIUM
     Dosage: UNK, UNKNOWN
     Route: 065
  10. DAPAGLIFLOZIN [Concomitant]
     Active Substance: DAPAGLIFLOZIN
     Indication: DIABETES MELLITUS
     Dosage: UNK, UNKNOWN
     Route: 065
  11. HUMULIN R [Suspect]
     Active Substance: INSULIN HUMAN
     Dosage: 20 IU, BID
     Route: 058
  12. NOVOLIN N [Suspect]
     Active Substance: INSULIN HUMAN
     Indication: DIABETES MELLITUS
     Dosage: 35 IU, QD
     Route: 058
     Dates: start: 201409
  13. HUMULIN N [Suspect]
     Active Substance: INSULIN HUMAN
     Indication: DIABETES MELLITUS
     Dosage: 45 IU, EACH MORNING
     Route: 058
  14. HUMALOG [Suspect]
     Active Substance: INSULIN LISPRO
     Indication: DIABETES MELLITUS
     Dosage: UNK, UNKNOWN
     Route: 065
  15. NOVOLIN N [Suspect]
     Active Substance: INSULIN HUMAN
     Dosage: 15 IU, QD
     Route: 058
     Dates: start: 201409

REACTIONS (9)
  - Cataract [Not Recovered/Not Resolved]
  - Injection site bruising [Recovering/Resolving]
  - Injection site mass [Recovering/Resolving]
  - Drug dispensing error [Unknown]
  - Injection site pain [Recovering/Resolving]
  - Glycosylated haemoglobin increased [Unknown]
  - Injection site haemorrhage [Recovering/Resolving]
  - Injection site discomfort [Recovering/Resolving]
  - Blood glucose increased [Unknown]
